FAERS Safety Report 6202702-3 (Version None)
Quarter: 2009Q2

REPORT INFORMATION
  Report Type: 
  Country: None (occurrence: None)
  Receive Date: 20090526
  Receipt Date: 20090515
  Transmission Date: 20091009
  Serious: Yes (Other)
  Sender: FDA-Public Use
  Company Number: PHHY2009GB06972

PATIENT
  Sex: Male

DRUGS (80)
  1. CLOZARIL [Suspect]
     Dosage: 150 MG, BID
     Dates: start: 20020702
  2. CLOZARIL [Suspect]
     Dosage: 250 MG, BID
  3. CLOZARIL [Suspect]
     Dosage: 300 MG + 600 MG OD
     Dates: start: 20020901, end: 20021201
  4. CLOZARIL [Suspect]
     Dosage: 250 MG + 300 MG OD
     Dates: start: 20030201, end: 20030401
  5. CLOZARIL [Suspect]
     Dosage: 300 MG, BID
     Dates: start: 20030601, end: 20040601
  6. CLOZARIL [Suspect]
     Dosage: 150 MG + 200 MG OD
     Dates: start: 20040801
  7. CLOZARIL [Suspect]
     Dosage: 100 MG + 300 MG OD
     Dates: start: 20040201
  8. CLOZARIL [Suspect]
     Dosage: 100 MG + 500 MG OD
     Dates: start: 20040401
  9. CLOZARIL [Suspect]
     Dosage: 100 MG, BID
     Dates: start: 20050101
  10. CLOZARIL [Suspect]
     Dosage: 50 MG + 400 MG OD
     Dates: start: 20051201
  11. CLOZARIL [Suspect]
     Dosage: 100 MG + 300 MG OD
     Dates: start: 20050201
  12. CLOZARIL [Suspect]
     Dosage: 100 MG + 500 MG OD
     Dates: start: 20050401
  13. CLOZARIL [Suspect]
     Dosage: 100 MG + 500 MG OD
     Dates: start: 20060801
  14. CLOZARIL [Suspect]
     Dosage: 150 MG + 500 MG OD
     Dates: start: 20061001
  15. CLOZARIL [Suspect]
     Dosage: 300 MG, BID
     Dates: end: 20070801
  16. CLOZARIL [Suspect]
     Dosage: 275 MG + 300 MG OD
     Dates: start: 20070801, end: 20080701
  17. CLOZARIL [Suspect]
     Dosage: 225 MG + 300 MG OD
     Dates: start: 20080801
  18. CLOZARIL [Suspect]
     Dosage: UNK
     Dates: start: 20081101
  19. CLOZARIL [Suspect]
     Dosage: 200 MG IN THE MORNING AND 325 MG AT NIGHT
     Dates: start: 20090313
  20. CLOMIPRAMINE HCL [Concomitant]
     Dosage: 50 MG, BID
     Dates: start: 20080801, end: 20090409
  21. CLOMIPRAMINE HCL [Concomitant]
     Dosage: UNK
     Dates: end: 20090401
  22. SERTRALINE HCL [Concomitant]
     Indication: OBSESSIVE-COMPULSIVE DISORDER
     Dosage: 200 MG, QD
     Dates: start: 20020701, end: 20030201
  23. SERTRALINE HCL [Concomitant]
     Dosage: 150 MG, QD
     Dates: start: 20030201
  24. SERTRALINE HCL [Concomitant]
     Dosage: 100 MG, QD
     Dates: start: 20030401, end: 20030401
  25. SERTRALINE HCL [Concomitant]
     Dosage: 100 MG
     Dates: start: 20090401
  26. HYOSCINE [Concomitant]
     Dosage: 300 UG, QD
     Dates: start: 20020801
  27. HYOSCINE [Concomitant]
     Dosage: 300 MCG + 600 MCG OD
     Dates: start: 20020901, end: 20021201
  28. HYOSCINE [Concomitant]
     Dosage: UNK
     Dates: start: 20030401, end: 20041201
  29. BENZHEXOL [Concomitant]
     Dosage: 3 MG, BID
     Dates: start: 20030201
  30. CITALOPRAM HYDROBROMIDE [Concomitant]
     Dosage: UNK
     Dates: start: 20030601
  31. CITALOPRAM HYDROBROMIDE [Concomitant]
     Dosage: 20 MG, QD
     Dates: start: 20050101
  32. CITALOPRAM HYDROBROMIDE [Concomitant]
     Dosage: 10 MG, QD
     Dates: start: 20050201
  33. CITALOPRAM HYDROBROMIDE [Concomitant]
     Dosage: 20 MG, QD
     Dates: start: 20050601
  34. CITALOPRAM HYDROBROMIDE [Concomitant]
     Dosage: 40 MG, QD
     Dates: start: 20060801, end: 20070601
  35. CITALOPRAM HYDROBROMIDE [Concomitant]
     Dosage: 20 MG, QD
     Dates: start: 20070701
  36. ARIPIPRAZOLE [Concomitant]
     Dosage: 10 MG, QD
     Dates: start: 20050201
  37. ARIPIPRAZOLE [Concomitant]
     Dosage: 20 MG, QD
     Dates: end: 20050301
  38. ARIPIPRAZOLE [Concomitant]
     Dosage: 5 MG, QD, INCREASING TO 10 MG THEN 20 MG QD
     Dates: start: 20050701
  39. ARIPIPRAZOLE [Concomitant]
     Dosage: INCREASING TO 10 MG THEN 20 MG QD
     Dates: end: 20050801
  40. ARIPIPRAZOLE [Concomitant]
     Dosage: 20 MG, QD
     Dates: start: 20050901
  41. ARIPIPRAZOLE [Concomitant]
     Dosage: 15 MG, QD THEN 10 MG QD
     Dates: start: 20051001
  42. ARIPIPRAZOLE [Concomitant]
     Dosage: 10 MG, QD
     Dates: start: 20051201
  43. ARIPIPRAZOLE [Concomitant]
     Dosage: 10 MG, QD
     Dates: start: 20060201, end: 20060401
  44. ARIPIPRAZOLE [Concomitant]
     Dosage: 5 MG, QD
     Dates: start: 20080601
  45. RISPERIDONE [Concomitant]
     Dosage: 1 MG,
     Dates: start: 20050401
  46. RISPERIDONE [Concomitant]
     Dosage: 2 MG, BID
     Dates: start: 20050501
  47. RISPERIDONE [Concomitant]
     Dosage: 3 MG, BID
     Dates: start: 20050501
  48. RISPERIDONE [Concomitant]
     Dosage: 3 MG, TID
     Dates: start: 20050701
  49. RISPERIDONE [Concomitant]
     Dosage: 3 MG, BID
     Dates: start: 20050701
  50. RISPERIDONE [Concomitant]
     Dosage: 3 MG,
     Dates: start: 20050701
  51. RISPERIDONE [Concomitant]
     Dosage: 2 MG, QD
     Dates: start: 20050801
  52. RISPERIDONE [Concomitant]
     Dosage: 1 MG
     Dates: start: 20050801, end: 20050801
  53. SULPIRIDE [Concomitant]
     Dosage: 200 MG, BID
     Dates: start: 20060401
  54. SULPIRIDE [Concomitant]
     Dosage: 400 MG, BID
     Dates: start: 20060601, end: 20060901
  55. AMISULPRIDE [Concomitant]
     Dosage: 200 MG, BID
     Dates: start: 20061001
  56. AMISULPRIDE [Concomitant]
     Dosage: 300 MG, BID
     Dates: end: 20070501
  57. AMISULPRIDE [Concomitant]
     Dosage: 150 MG, BID
  58. AMISULPRIDE [Concomitant]
     Dosage: 150 MG, QD
     Dates: start: 20070601
  59. AMITRIPTLINE HYDROCHLORIDE TAB [Concomitant]
     Dosage: 25 MG
     Dates: start: 20060101
  60. AMITRIPTLINE HYDROCHLORIDE TAB [Concomitant]
     Dosage: 25 MG, BID
     Dates: start: 20060101
  61. PROPANTHELINE [Concomitant]
     Dosage: 15 MG, BID
     Dates: start: 20070801
  62. PROPANTHELINE [Concomitant]
     Dosage: 15 MG, QD
     Dates: start: 20070401
  63. ESCITALOPRAM [Concomitant]
     Dosage: 5 MG, QD
     Dates: start: 20050301
  64. ESCITALOPRAM [Concomitant]
     Dosage: 10 MG, QD
     Dates: start: 20050401
  65. ESCITALOPRAM [Concomitant]
     Dosage: 20 MG, QD
     Dates: start: 20050401
  66. ESCITALOPRAM [Concomitant]
     Dosage: 10 MG, QD
     Dates: start: 20050501, end: 20050501
  67. DIAZEPAM [Concomitant]
     Dosage: 20 MG, BID
     Dates: start: 20090101
  68. DIAZEPAM [Concomitant]
     Dosage: 5 MG, BID
  69. DIAZEPAM [Concomitant]
     Dosage: 5 MG AT NIGHT
     Dates: start: 20090201
  70. ZOPICLONE [Concomitant]
     Dosage: 7.5 MG
     Dates: start: 20050301
  71. ZOPICLONE [Concomitant]
     Dosage: 15 MG
     Dates: start: 20050401
  72. ZOPICLONE [Concomitant]
     Dosage: 15 MG
     Dates: start: 20050501, end: 20050501
  73. TEMAZEPAM [Concomitant]
     Dosage: 20 MG ON
     Dates: start: 20050501
  74. TEMAZEPAM [Concomitant]
     Dosage: 30 MG ON
     Dates: start: 20050701
  75. TEMAZEPAM [Concomitant]
     Dosage: 20 MG ON
     Dates: start: 20050801, end: 20051101
  76. TEMAZEPAM [Concomitant]
     Dosage: 10 MG ON
     Dates: start: 20051201
  77. HALOPERIDOL [Concomitant]
     Dosage: 5 MG, BID
     Dates: start: 20050901
  78. MIRTAZAPINE [Concomitant]
     Dosage: 15 MG ON
     Dates: start: 20050501
  79. OLANZAPINE [Concomitant]
     Dosage: 5 MG, BID
     Dates: start: 20051001, end: 20051101
  80. OLANZAPINE [Concomitant]
     Dosage: 5 MG, QD

REACTIONS (6)
  - CONVULSION [None]
  - ELECTROCARDIOGRAM QT PROLONGED [None]
  - HEART RATE INCREASED [None]
  - OBSESSIVE-COMPULSIVE DISORDER [None]
  - PSYCHOTIC DISORDER [None]
  - SALIVARY HYPERSECRETION [None]
